FAERS Safety Report 13334981 (Version 2)
Quarter: 2017Q2

REPORT INFORMATION
  Report Type: Report from Study
  Country: DE (occurrence: DE)
  Receive Date: 20170314
  Receipt Date: 20170406
  Transmission Date: 20170830
  Serious: Yes (Death, Hospitalization, Other)
  Sender: FDA-Public Use
  Company Number: DE-BRISTOL-MYERS SQUIBB COMPANY-BMS-2017-019492

PATIENT
  Age: 76 Year
  Sex: Male
  Weight: 65.5 kg

DRUGS (7)
  1. NIVOLUMAB [Suspect]
     Active Substance: NIVOLUMAB
     Indication: MALIGNANT MELANOMA
     Dosage: 64.5 MG, UNK
     Route: 042
     Dates: start: 20170109
  2. FORTECORTIN                        /00016001/ [Concomitant]
     Active Substance: DEXAMETHASONE
     Indication: METASTASES TO LIVER
     Dosage: 8 MG, QD
     Route: 048
     Dates: start: 20170227
  3. PREDNISOLON                        /00016201/ [Concomitant]
     Active Substance: PREDNISOLONE
     Indication: AUTOIMMUNE COLITIS
     Dosage: 5 MG, UNK
     Route: 048
     Dates: start: 20170126, end: 20170225
  4. IPILIMUMAB [Suspect]
     Active Substance: IPILIMUMAB
     Indication: MALIGNANT MELANOMA
     Dosage: 190.81 MG, UNK
     Route: 042
     Dates: start: 20170109
  5. XGEVA [Concomitant]
     Active Substance: DENOSUMAB
     Indication: METASTASES TO BONE
     Dosage: 120 MG, UNK
     Route: 065
     Dates: start: 20170110
  6. CALCIUM [Concomitant]
     Active Substance: CALCIUM
     Indication: HYPOCALCAEMIA
     Dosage: 500 MG, QD
     Route: 048
     Dates: start: 20170227
  7. TORASEMID [Concomitant]
     Active Substance: TORSEMIDE
     Indication: OEDEMA PERIPHERAL
     Dosage: 10 MG, QD
     Route: 048
     Dates: start: 20170320

REACTIONS (1)
  - Malignant neoplasm progression [Fatal]

NARRATIVE: CASE EVENT DATE: 20170220
